FAERS Safety Report 8796890 (Version 2)
Quarter: 2013Q2

REPORT INFORMATION
  Report Type: Report from Study
  Country: JP (occurrence: JP)
  Receive Date: 20120919
  Receipt Date: 20130529
  Transmission Date: 20140414
  Serious: Yes (Other)
  Sender: FDA-Public Use
  Company Number: JP-VERTEX PHARMACEUTICAL INC.-AE-2012-012032

PATIENT
  Age: 64 Year
  Sex: Female

DRUGS (16)
  1. VX-950 (TELAPREVIR) [Suspect]
     Indication: CHRONIC HEPATITIS C
     Dosage: 1500 MG, QD
     Route: 048
     Dates: start: 20120614, end: 20120712
  2. VX-950 (TELAPREVIR) [Suspect]
     Dosage: 1000 MG, QD
     Route: 048
     Dates: start: 20120713, end: 20120822
  3. VX-950 (TELAPREVIR) [Suspect]
     Dosage: 1000 MG, QD
     Route: 048
     Dates: start: 20120830, end: 20120913
  4. RIBAVIRIN [Suspect]
     Indication: CHRONIC HEPATITIS C
     Dosage: 400 MG, QD
     Route: 048
     Dates: start: 20120614, end: 20120702
  5. RIBAVIRIN [Suspect]
     Dosage: 200 MG, QD
     Route: 048
     Dates: start: 20120703, end: 20120822
  6. RIBAVIRIN [Suspect]
     Dosage: 200 MG, QD
     Route: 048
     Dates: start: 20120830
  7. PEGINTRON [Suspect]
     Indication: CHRONIC HEPATITIS C
     Dosage: 1.5 ?G/KG, QW
     Route: 058
     Dates: start: 20120614, end: 20120809
  8. PEGINTRON [Suspect]
     Dosage: 1.5 ?G/KG, QW
     Route: 058
     Dates: start: 20120830
  9. PEGINTRON [Suspect]
     Dosage: UNK
  10. AMARYL [Concomitant]
     Dosage: 1.5 MG, QD
     Route: 048
  11. NORVASC [Concomitant]
     Dosage: 5 MG, QD
     Route: 048
  12. BAYASPIRIN [Concomitant]
     Dosage: 100 MG, QD
     Route: 048
  13. KETAS [Concomitant]
     Dosage: 30 MG, QD
     Route: 048
  14. SELBEX [Concomitant]
     Dosage: 1.5 G, QD
     Route: 048
     Dates: start: 20120614
  15. XYZAL [Concomitant]
     Dosage: 5 MG, QD
     Route: 048
     Dates: start: 20120614
  16. L-CARTIN [Concomitant]
     Dosage: 900 MG, QD
     Route: 048
     Dates: start: 20120614

REACTIONS (2)
  - Renal disorder [Recovered/Resolved]
  - Anaemia [Recovered/Resolved]
